FAERS Safety Report 14615210 (Version 2)
Quarter: 2018Q1

REPORT INFORMATION
  Report Type: Report from Study
  Country: US (occurrence: US)
  Receive Date: 20180308
  Receipt Date: 20180330
  Transmission Date: 20180509
  Serious: Yes (Death)
  Sender: FDA-Public Use
  Company Number: US-ACTELION-A-US2017-161878

PATIENT
  Age: 54 Year
  Sex: Female
  Weight: 66.21 kg

DRUGS (1)
  1. OPSUMIT [Suspect]
     Active Substance: MACITENTAN
     Indication: PULMONARY ARTERIAL HYPERTENSION
     Dosage: 10 MG, QD
     Route: 048
     Dates: start: 201710

REACTIONS (6)
  - Cough [Unknown]
  - Thirst [Unknown]
  - Decreased appetite [Unknown]
  - Nasal congestion [Unknown]
  - Liver disorder [Fatal]
  - Abdominal distension [Unknown]

NARRATIVE: CASE EVENT DATE: 201710
